FAERS Safety Report 9880348 (Version 1)
Quarter: 2014Q1

REPORT INFORMATION
  Report Type: Spontaneous
  Country: US (occurrence: None)
  Receive Date: 20140206
  Receipt Date: 20140206
  Transmission Date: 20141002
  Serious: Yes (Other)
  Sender: FDA-Public Use
  Company Number: None

PATIENT
  Age: 15 Year
  Sex: Female
  Weight: 61.24 kg

DRUGS (1)
  1. VYVANSE 40MG SHIRE [Suspect]
     Indication: ATTENTION DEFICIT/HYPERACTIVITY DISORDER
     Dosage: 1 PILL MORNINGS DAILY ONCE DAILY TAKEN BY MOUTH
     Route: 048
     Dates: start: 20131223, end: 20140204

REACTIONS (2)
  - Abdominal pain upper [None]
  - Abasia [None]
